FAERS Safety Report 21771910 (Version 2)
Quarter: 2025Q2

REPORT INFORMATION
  Report Type: Spontaneous
  Country: FR (occurrence: FR)
  Receive Date: 20221223
  Receipt Date: 20250614
  Transmission Date: 20250717
  Serious: Yes (Hospitalization, Other)
  Sender: AUROBINDO
  Company Number: FR-MLMSERVICE-20221205-3858750-1

PATIENT
  Age: 73 Year
  Sex: Male

DRUGS (5)
  1. RITONAVIR [Interacting]
     Active Substance: RITONAVIR
     Indication: COVID-19
     Route: 065
  2. CARFILZOMIB [Interacting]
     Active Substance: CARFILZOMIB
     Indication: Plasma cell myeloma
     Route: 065
  3. DEXAMETHASONE [Concomitant]
     Active Substance: DEXAMETHASONE
     Indication: Plasma cell myeloma
     Route: 065
  4. ECULIZUMAB [Concomitant]
     Active Substance: ECULIZUMAB
     Indication: Product used for unknown indication
     Route: 065
  5. LEUCOVORIN [Concomitant]
     Active Substance: LEUCOVORIN\LEUCOVORIN CALCIUM
     Indication: Product used for unknown indication
     Route: 065

REACTIONS (9)
  - Acute kidney injury [Recovered/Resolved]
  - Myocardial injury [Recovered/Resolved]
  - Thrombotic microangiopathy [Recovered/Resolved]
  - Drug interaction [Recovered/Resolved]
  - Cardiac dysfunction [Recovered/Resolved]
  - Bicytopenia [Recovered/Resolved]
  - Overdose [Recovered/Resolved]
  - Anuria [Unknown]
  - Dyspnoea [Unknown]
